FAERS Safety Report 5424636-4 (Version None)
Quarter: 2007Q3

REPORT INFORMATION
  Report Type: 
  Country: None (occurrence: None)
  Receive Date: 20070731
  Receipt Date: 20070331
  Transmission Date: 20080115
  Serious: No
  Sender: FDA-Public Use
  Company Number: US2007PV032769

PATIENT
  Sex: Female

DRUGS (1)
  1. EXENATIDE(EXENATIDE) PEN,DISPOSABLE [Suspect]
     Indication: TYPE 2 DIABETES MELLITUS
     Dosage: 10 UG, 2/D, SUBCUTANEOUS
     Route: 058

REACTIONS (2)
  - MALAISE [None]
  - VOMITING [None]
